FAERS Safety Report 11618212 (Version 1)
Quarter: 2015Q4

REPORT INFORMATION
  Report Type: Spontaneous
  Country: US (occurrence: US)
  Receive Date: 20151011
  Receipt Date: 20151011
  Transmission Date: 20160304
  Serious: No
  Sender: FDA-Public Use
  Company Number: US-009507513-1509USA010806

PATIENT

DRUGS (1)
  1. TEMODAR [Suspect]
     Active Substance: TEMOZOLOMIDE
     Dosage: VIA A CONTINUOUS FEEDING TUBE

REACTIONS (3)
  - Gastrointestinal tube insertion [Unknown]
  - Incorrect route of drug administration [Unknown]
  - No adverse event [Unknown]
